FAERS Safety Report 19012307 (Version 2)
Quarter: 2022Q4

REPORT INFORMATION
  Report Type: Spontaneous
  Country: CA (occurrence: None)
  Receive Date: 20210315
  Receipt Date: 20221103
  Transmission Date: 20230113
  Serious: Yes (Other)
  Sender: FDA-Public Use
  Company Number: 2021A117052

PATIENT
  Age: 24 Year
  Sex: Female
  Weight: 65 kg

DRUGS (8)
  1. BUDESONIDE [Suspect]
     Active Substance: BUDESONIDE
     Indication: Product used for unknown indication
     Route: 065
     Dates: start: 2001
  2. CIPROFLOXACIN HYDROCHLORIDE [Suspect]
     Active Substance: CIPROFLOXACIN HYDROCHLORIDE
     Indication: Product used for unknown indication
     Route: 065
     Dates: start: 2011
  3. FLAGYL [Suspect]
     Active Substance: METRONIDAZOLE\METRONIDAZOLE HYDROCHLORIDE
     Indication: Product used for unknown indication
     Route: 065
     Dates: start: 2011
  4. HUMIRA [Suspect]
     Active Substance: ADALIMUMAB
     Dosage: 40.0MG UNKNOWN
     Route: 058
  5. MESALAMINE [Suspect]
     Active Substance: MESALAMINE
     Indication: Product used for unknown indication
     Route: 065
     Dates: start: 2011, end: 2013
  6. METHOTREXATE [Suspect]
     Active Substance: METHOTREXATE
     Indication: Product used for unknown indication
     Route: 048
     Dates: start: 2011
  7. METRONIDAZOLE [Suspect]
     Active Substance: METRONIDAZOLE
     Route: 065
  8. ELAVIL[AMITTRIPTYLINE HYDROCHOLRIDE] [Concomitant]
     Indication: Product used for unknown indication
     Route: 048

REACTIONS (3)
  - Crohn^s disease [Unknown]
  - Anxiety [Unknown]
  - Drug ineffective [Unknown]
